FAERS Safety Report 6360346-7 (Version None)
Quarter: 2009Q3

REPORT INFORMATION
  Report Type: 
  Country: None (occurrence: None)
  Receive Date: 20090917
  Receipt Date: 20090909
  Transmission Date: 20100115
  Serious: Yes (Hospitalization, Other)
  Sender: FDA-Public Use
  Company Number: PHHY2009BR38370

PATIENT
  Sex: Female

DRUGS (2)
  1. FORASEQ [Suspect]
     Dosage: EVERY 12 HOURS
  2. FORASEQ [Suspect]
     Dosage: UNK
     Dates: start: 20090904

REACTIONS (2)
  - NEOPLASM MALIGNANT [None]
  - SURGERY [None]
